FAERS Safety Report 15618053 (Version 1)
Quarter: 2018Q4

REPORT INFORMATION
  Report Type: Spontaneous
  Country: US (occurrence: US)
  Receive Date: 20181114
  Receipt Date: 20181114
  Transmission Date: 20190205
  Serious: No
  Sender: FDA-Public Use
  Company Number: US-PFIZER INC-2018452163

PATIENT
  Age: 74 Year
  Sex: Female
  Weight: 79.37 kg

DRUGS (3)
  1. CELECOXIB. [Suspect]
     Active Substance: CELECOXIB
     Dosage: 200 MG, AS NEEDED
     Route: 048
  2. GLIPIZIDE XL [Suspect]
     Active Substance: GLIPIZIDE
     Dosage: 2.5 MG, UNK
  3. GLIPIZIDE. [Suspect]
     Active Substance: GLIPIZIDE
     Dosage: 2.5 MG, UNK

REACTIONS (2)
  - Blood glucose increased [Unknown]
  - Product dispensing error [Unknown]
